FAERS Safety Report 19174422 (Version 16)
Quarter: 2024Q1

REPORT INFORMATION
  Report Type: Spontaneous
  Country: US (occurrence: US)
  Receive Date: 20210423
  Receipt Date: 20240115
  Transmission Date: 20240410
  Serious: No
  Sender: FDA-Public Use
  Company Number: US-PFIZER INC-2021185392

PATIENT
  Age: 56 Year
  Sex: Female
  Weight: 63.96 kg

DRUGS (3)
  1. PREMPRO [Suspect]
     Active Substance: ESTROGENS, CONJUGATED\MEDROXYPROGESTERONE ACETATE
     Indication: Menstrual cycle management
     Dosage: UNK
  2. PREMPRO [Suspect]
     Active Substance: ESTROGENS, CONJUGATED\MEDROXYPROGESTERONE ACETATE
     Indication: Uterine leiomyoma
  3. SYNTHROID [Concomitant]
     Active Substance: LEVOTHYROXINE SODIUM
     Dosage: UNK

REACTIONS (8)
  - Vertigo [Unknown]
  - Withdrawal syndrome [Unknown]
  - Mood swings [Unknown]
  - Depression [Unknown]
  - Hyperhidrosis [Unknown]
  - Furuncle [Unknown]
  - Off label use [Unknown]
  - Drug effective for unapproved indication [Unknown]
